FAERS Safety Report 18073965 (Version 1)
Quarter: 2020Q3

REPORT INFORMATION
  Report Type: Spontaneous
  Country: US (occurrence: US)
  Receive Date: 20200727
  Receipt Date: 20200727
  Transmission Date: 20201103
  Serious: Yes (Disabling, Other)
  Sender: FDA-Public Use
  Company Number: US-PURDUE-USA-2020-0159043

PATIENT
  Sex: Male

DRUGS (1)
  1. OXYCODONE HYDROCHLORIDE (SIMILAR TO NDA 22?272) [Suspect]
     Active Substance: OXYCODONE HYDROCHLORIDE
     Indication: PRODUCT USED FOR UNKNOWN INDICATION
     Dosage: UNK FOR ALMOST 20 YEARS
     Route: 048

REACTIONS (13)
  - Bowel movement irregularity [Unknown]
  - Hip arthroplasty [Unknown]
  - Road traffic accident [Unknown]
  - Decreased appetite [Unknown]
  - Resorption bone increased [Unknown]
  - Asthenia [Unknown]
  - Arthralgia [Unknown]
  - Drug dependence [Unknown]
  - Depression [Unknown]
  - Overdose [Unknown]
  - Disability [Unknown]
  - Bone density decreased [Unknown]
  - Mood swings [Unknown]
